FAERS Safety Report 12143215 (Version 3)
Quarter: 2018Q2

REPORT INFORMATION
  Report Type: Report from Study
  Country: BR (occurrence: BR)
  Receive Date: 20160304
  Receipt Date: 20180611
  Transmission Date: 20180711
  Serious: Yes (Other)
  Sender: FDA-Public Use
  Company Number: BR-ROCHE-1713922

PATIENT
  Age: 51 Year
  Sex: Female
  Weight: 108 kg

DRUGS (7)
  1. OSCAL [Concomitant]
     Active Substance: CALCIUM CARBONATE
     Dosage: ONE TABLET AFTER THE LUNCH
     Route: 065
  2. LEFLUNOMIDE. [Concomitant]
     Active Substance: LEFLUNOMIDE
     Indication: RHEUMATOID ARTHRITIS
     Route: 065
  3. ACTEMRA [Suspect]
     Active Substance: TOCILIZUMAB
     Indication: RHEUMATOID ARTHRITIS
     Dosage: MOST RECENT DOSE WAS ON 05/MAY/2018
     Route: 042
     Dates: start: 20160114
  4. METHOTREXATE. [Concomitant]
     Active Substance: METHOTREXATE
     Indication: RHEUMATOID ARTHRITIS
     Route: 065
  5. FOLIC ACID. [Concomitant]
     Active Substance: FOLIC ACID
     Route: 065
  6. PREDNISONE. [Concomitant]
     Active Substance: PREDNISONE
     Indication: RHEUMATOID ARTHRITIS
     Route: 065
  7. METHOTREXATE. [Concomitant]
     Active Substance: METHOTREXATE
     Route: 065

REACTIONS (13)
  - Blister infected [Recovering/Resolving]
  - Localised infection [Recovered/Resolved]
  - Dysstasia [Not Recovered/Not Resolved]
  - Extravasation [Unknown]
  - Swelling [Not Recovered/Not Resolved]
  - Gait disturbance [Not Recovered/Not Resolved]
  - Arthralgia [Recovering/Resolving]
  - Mass [Unknown]
  - Allergic cough [Recovering/Resolving]
  - Musculoskeletal stiffness [Recovering/Resolving]
  - Overweight [Not Recovered/Not Resolved]
  - Ligament sprain [Unknown]
  - Urinary incontinence [Recovering/Resolving]

NARRATIVE: CASE EVENT DATE: 201805
